FAERS Safety Report 5156782-7 (Version None)
Quarter: 2006Q4

REPORT INFORMATION
  Report Type: 
  Country: None (occurrence: None)
  Receive Date: 20061115
  Receipt Date: 20061031
  Transmission Date: 20070319
  Serious: Yes (Disabling)
  Sender: FDA-Public Use
  Company Number: 2006-276

PATIENT
  Age: 73 Year
  Sex: Female

DRUGS (9)
  1. CITALOPRAM HYDROBROMIDE [Suspect]
     Dosage: 20MG DAILY
  2. ASPIRIN [Suspect]
  3. CODEINE PHOSPHATE [Concomitant]
  4. LANSOPRAZOLE [Concomitant]
  5. LEVOTHYROXINE SODIUM [Concomitant]
  6. ACETAMINOPHEN [Concomitant]
  7. SIMVASTATIN [Concomitant]
  8. SODIUM DOCUSATE [Concomitant]
  9. TEMAZEPAM [Concomitant]

REACTIONS (1)
  - UPPER GASTROINTESTINAL HAEMORRHAGE [None]
